FAERS Safety Report 17805939 (Version 5)
Quarter: 2020Q4

REPORT INFORMATION
  Report Type: Report from Study
  Country: None (occurrence: US)
  Receive Date: 20200520
  Receipt Date: 20201015
  Transmission Date: 20210113
  Serious: Yes (Hospitalization)
  Sender: FDA-Public Use
  Company Number: US-ABBVIE-20P-163-3411137-00

PATIENT
  Age: 72 Year
  Sex: Female
  Weight: 56.93 kg

DRUGS (3)
  1. IMBRUVICA [Suspect]
     Active Substance: IBRUTINIB
     Indication: B-CELL SMALL LYMPHOCYTIC LYMPHOMA
     Route: 048
  2. IMBRUVICA [Suspect]
     Active Substance: IBRUTINIB
     Indication: WALDENSTROM^S MACROGLOBULINAEMIA
     Route: 048
     Dates: start: 20190906
  3. IMBRUVICA [Suspect]
     Active Substance: IBRUTINIB
     Route: 048
     Dates: start: 20190911

REACTIONS (8)
  - Back pain [Unknown]
  - Asthenia [Unknown]
  - Blood electrolytes abnormal [Unknown]
  - Nausea [Unknown]
  - Vomiting [Unknown]
  - Pancreatic carcinoma [Not Recovered/Not Resolved]
  - Fatigue [Unknown]
  - Blood potassium decreased [Unknown]

NARRATIVE: CASE EVENT DATE: 20200502
